FAERS Safety Report 4662005-5 (Version None)
Quarter: 2005Q2

REPORT INFORMATION
  Report Type: 
  Country: None (occurrence: None)
  Receive Date: 20050516
  Receipt Date: 20050323
  Transmission Date: 20051028
  Serious: Yes (Other)
  Sender: FDA-Public Use
  Company Number: DE-SOLVAY-00305000929

PATIENT
  Age: 34061 Day
  Sex: Female

DRUGS (2)
  1. RAMIPRIL [Concomitant]
     Indication: ILL-DEFINED DISORDER
     Dosage: DAILY DOSE:  UNKNOWN
     Route: 048
  2. PANKREON FORTE 28000 [Suspect]
     Indication: ILL-DEFINED DISORDER
     Dosage: DAILY DOSE:  UNKNOWN
     Route: 065

REACTIONS (7)
  - DYSPHAGIA [None]
  - FOREIGN BODY TRAUMA [None]
  - HAEMOPTYSIS [None]
  - OESOPHAGEAL PAIN [None]
  - PHARMACEUTICAL PRODUCT COMPLAINT [None]
  - PHARYNGOLARYNGEAL PAIN [None]
  - THROAT IRRITATION [None]
